FAERS Safety Report 5195154-6 (Version None)
Quarter: 2006Q4

REPORT INFORMATION
  Report Type: 
  Country: None (occurrence: None)
  Receive Date: 20061229
  Receipt Date: 20061211
  Transmission Date: 20070319
  Serious: Yes (Hospitalization)
  Sender: FDA-Public Use
  Company Number: CA-BOEHRINGER INGELHEIM GMBH, GERMANY-2006-CN-00745CN

PATIENT
  Sex: Male

DRUGS (1)
  1. MICARDIS [Suspect]
     Dates: start: 20060526, end: 20061101

REACTIONS (1)
  - MYOCARDIAL INFARCTION [None]
